FAERS Safety Report 5895436-6 (Version None)
Quarter: 2008Q3

REPORT INFORMATION
  Report Type: 
  Country: None (occurrence: None)
  Receive Date: 20080924
  Receipt Date: 20080910
  Transmission Date: 20090109
  Serious: Yes (Hospitalization)
  Sender: FDA-Public Use
  Company Number: US-ROCHE-575675

PATIENT
  Sex: Female

DRUGS (6)
  1. MYCOPHENOLATE MOFETIL [Suspect]
     Indication: RENAL TRANSPLANT
     Route: 048
     Dates: start: 20070122
  2. BELATACEPT [Suspect]
     Indication: RENAL TRANSPLANT
     Dosage: ON 31 JULY 2008, DOSING INFORMATION WAS UNBLINDED
     Route: 042
     Dates: start: 20060613
  3. PREDNISONE [Suspect]
     Indication: RENAL TRANSPLANT
     Route: 048
     Dates: start: 20060901
  4. INSULIN [Concomitant]
  5. SYNTHROID [Concomitant]
  6. CALCIUM/VITAMIN D [Concomitant]
     Dosage: DRUG REPORTED AS CALCIUM + VITAMIN D
     Dates: start: 20060621

REACTIONS (2)
  - DIARRHOEA [None]
  - WEIGHT DECREASED [None]
